FAERS Safety Report 23510437 (Version 1)
Quarter: 2024Q1

REPORT INFORMATION
  Report Type: Spontaneous
  Country: US (occurrence: None)
  Receive Date: 20240211
  Receipt Date: 20240211
  Transmission Date: 20240410
  Serious: Yes (Other)
  Sender: FDA-Public Use
  Company Number: US-ROCHE-3503985

PATIENT
  Sex: Male
  Weight: 113.3 kg

DRUGS (9)
  1. VABYSMO [Suspect]
     Active Substance: FARICIMAB\FARICIMAB-SVOA
     Indication: Neovascular age-related macular degeneration
     Route: 065
     Dates: start: 20240117, end: 20240117
  2. AVASTIN [Suspect]
     Active Substance: BEVACIZUMAB
     Indication: Neovascular age-related macular degeneration
     Route: 065
     Dates: start: 2022, end: 202312
  3. METOPROLOL [Concomitant]
     Active Substance: METOPROLOL
     Indication: Hypertension
     Route: 048
     Dates: start: 201704
  4. LIVALO [Concomitant]
     Active Substance: PITAVASTATIN CALCIUM
     Indication: Blood cholesterol increased
     Route: 048
     Dates: start: 201704
  5. PLAVIX [Concomitant]
     Active Substance: CLOPIDOGREL BISULFATE
     Route: 048
     Dates: start: 201704
  6. ASPIRIN [Concomitant]
     Active Substance: ASPIRIN
     Route: 048
  7. SYSTANE (HYPROMELLOSE 2910 (4000 MPA.S)) [Concomitant]
     Active Substance: HYPROMELLOSE 2910 (4000 MPA.S)
     Dosage: DOES A FEW DROPS IN EACH EYE, FOUR TO FIVE TIMES PER DAY
     Route: 047
  8. PREDNISONE [Concomitant]
     Active Substance: PREDNISONE
     Indication: Eye infection
     Dosage: ONE DROP IN LEFT EYE
     Route: 047
     Dates: start: 20240124
  9. MOXIFLOXACIN [Concomitant]
     Active Substance: MOXIFLOXACIN
     Indication: Eye infection
     Dosage: ONE DROP IN LEFT EYE
     Route: 047
     Dates: start: 20230124, end: 20230126

REACTIONS (8)
  - Neovascular age-related macular degeneration [Recovered/Resolved]
  - Eye pain [Recovered/Resolved]
  - Vitreous floaters [Recovering/Resolving]
  - Eye inflammation [Recovering/Resolving]
  - Photopsia [Recovering/Resolving]
  - Optic atrophy [Not Recovered/Not Resolved]
  - Eye disorder [Unknown]
  - Off label use [Unknown]

NARRATIVE: CASE EVENT DATE: 20220101
